FAERS Safety Report 20050436 (Version 2)
Quarter: 2022Q1

REPORT INFORMATION
  Report Type: Spontaneous
  Country: US (occurrence: US)
  Receive Date: 20211109
  Receipt Date: 20220228
  Transmission Date: 20220423
  Serious: No
  Sender: FDA-Public Use
  Company Number: US-BEH-2021138027

PATIENT
  Sex: Female

DRUGS (4)
  1. HIZENTRA [Suspect]
     Active Substance: HUMAN IMMUNOGLOBULIN G
     Indication: Immunodeficiency common variable
     Dosage: 10 GRAM, QOW
     Route: 058
     Dates: start: 202103
  2. HIZENTRA [Suspect]
     Active Substance: HUMAN IMMUNOGLOBULIN G
     Dosage: 8 GRAM, QOW
     Route: 058
     Dates: start: 202103
  3. HIZENTRA [Suspect]
     Active Substance: HUMAN IMMUNOGLOBULIN G
     Dosage: 10 GRAM, QOW
     Route: 058
     Dates: start: 201611
  4. HIZENTRA [Suspect]
     Active Substance: HUMAN IMMUNOGLOBULIN G
     Dosage: 8 GRAM, QOW
     Route: 058
     Dates: start: 201611

REACTIONS (10)
  - Injection site erythema [Recovered/Resolved]
  - Recalled product administered [Recovered/Resolved]
  - Fatigue [Recovered/Resolved]
  - Recalled product administered [Recovered/Resolved]
  - Pain [Unknown]
  - Recalled product administered [Unknown]
  - Headache [Unknown]
  - Recalled product administered [Unknown]
  - Pyrexia [Unknown]
  - Recalled product administered [Unknown]
